FAERS Safety Report 8839461 (Version 1)
Quarter: 2012Q4

REPORT INFORMATION
  Report Type: 
  Country: GB (occurrence: GB)
  Receive Date: 20121015
  Receipt Date: 20121015
  Transmission Date: 20130627
  Serious: Yes (Life-Threatening, Hospitalization, Disabling, Other)
  Sender: FDA-Public Use
  Company Number: GB-MYLANLABS-2012S1020508

PATIENT
  Age: 36 Year
  Sex: Female
  Weight: 67 kg

DRUGS (1)
  1. CITALOPRAM [Suspect]
     Indication: PRODUCT USED FOR UNKNOWN INDICATION
     Route: 048
     Dates: start: 20080510, end: 20110403

REACTIONS (5)
  - Alcoholism [Recovered/Resolved with Sequelae]
  - Myoclonus [Recovered/Resolved with Sequelae]
  - Psychotic disorder [Recovered/Resolved with Sequelae]
  - Suicide attempt [Recovered/Resolved with Sequelae]
  - Bipolar disorder [Unknown]
